FAERS Safety Report 22097517 (Version 1)
Quarter: 2023Q1

REPORT INFORMATION
  Report Type: Spontaneous
  Country: US (occurrence: None)
  Receive Date: 20230314
  Receipt Date: 20230314
  Transmission Date: 20230418
  Serious: Yes (Other)
  Sender: FDA-Public Use
  Company Number: None

PATIENT
  Age: 54 Year
  Sex: Female
  Weight: 87.09 kg

DRUGS (2)
  1. BUPROPION [Suspect]
     Active Substance: BUPROPION
     Indication: Major depression
     Dosage: FREQUENCY : DAILY;?
     Route: 048
     Dates: start: 2018, end: 20230228
  2. BUPROPION [Suspect]
     Active Substance: BUPROPION
     Indication: Anxiety

REACTIONS (6)
  - Drug ineffective [None]
  - Depressed mood [None]
  - Crying [None]
  - Depression [None]
  - Poor personal hygiene [None]
  - Anxiety [None]

NARRATIVE: CASE EVENT DATE: 20230201
